FAERS Safety Report 13975516 (Version 1)
Quarter: 2017Q3

REPORT INFORMATION
  Report Type: Spontaneous
  Country: FR (occurrence: FR)
  Receive Date: 20170915
  Receipt Date: 20170915
  Transmission Date: 20171128
  Serious: Yes (Other)
  Sender: FDA-Public Use
  Company Number: FR-BAYER-2017-171124

PATIENT
  Age: 9 Year
  Sex: Male

DRUGS (1)
  1. HELIXATE NEXGEN [Suspect]
     Active Substance: ANTIHEMOPHILIC FACTOR, HUMAN RECOMBINANT
     Indication: FACTOR VIII DEFICIENCY
     Dosage: 1250 U, QOD
     Route: 042
     Dates: end: 20170826

REACTIONS (1)
  - Haemarthrosis [None]
